FAERS Safety Report 24986984 (Version 2)
Quarter: 2025Q1

REPORT INFORMATION
  Report Type: Report from Study
  Country: US (occurrence: US)
  Receive Date: 20250219
  Receipt Date: 20250312
  Transmission Date: 20250409
  Serious: Yes (Hospitalization)
  Sender: ALKERMES
  Company Number: US-ALKERMES INC.-ALK-2025-000362

PATIENT
  Age: 61 Year
  Sex: Male

DRUGS (8)
  1. BUPRENORPHINE [Suspect]
     Active Substance: BUPRENORPHINE
     Indication: Drug dependence
     Route: 030
     Dates: start: 20241203, end: 20250127
  2. INVESTIGATIONAL PRODUCT [Suspect]
     Active Substance: INVESTIGATIONAL PRODUCT
     Indication: Drug dependence
     Route: 030
     Dates: start: 20241203, end: 20250127
  3. VIVITROL [Suspect]
     Active Substance: NALTREXONE
     Indication: Drug dependence
     Route: 030
     Dates: start: 20241203, end: 20250127
  4. VIVITROL [Suspect]
     Active Substance: NALTREXONE
     Indication: Drug dependence
     Route: 030
     Dates: start: 20241203, end: 20250127
  5. BUPRENORPHINE [Suspect]
     Active Substance: BUPRENORPHINE
     Route: 058
     Dates: start: 20241206, end: 20250102
  6. INVESTIGATIONAL PRODUCT [Suspect]
     Active Substance: INVESTIGATIONAL PRODUCT
     Route: 058
     Dates: start: 20241206, end: 20250102
  7. VIVITROL [Suspect]
     Active Substance: NALTREXONE
     Route: 058
     Dates: start: 20241206, end: 20250102
  8. VIVITROL [Suspect]
     Active Substance: NALTREXONE
     Route: 058
     Dates: start: 20241206, end: 20250102

REACTIONS (1)
  - Pneumonia respiratory syncytial viral [Recovering/Resolving]

NARRATIVE: CASE EVENT DATE: 20250203
